FAERS Safety Report 10402008 (Version 2)
Quarter: 2020Q2

REPORT INFORMATION
  Report Type: Report from Study
  Country: US (occurrence: US)
  Receive Date: 20140822
  Receipt Date: 20200521
  Transmission Date: 20200713
  Serious: Yes (Other)
  Sender: FDA-Public Use
  Company Number: US-SA-2014SA111632

PATIENT
  Age: 47 Year
  Sex: Female

DRUGS (4)
  1. INSULIN GLARGINE [Suspect]
     Active Substance: INSULIN GLARGINE
     Indication: TYPE 2 DIABETES MELLITUS
     Dosage: UNK UNK, BID
     Dates: start: 2006
  2. INSULIN GLARGINE [Suspect]
     Active Substance: INSULIN GLARGINE
     Dosage: (20-70 IU)
  3. INSULIN GLARGINE [Suspect]
     Active Substance: INSULIN GLARGINE
     Dosage: 20 IU
  4. HUMALOG [Concomitant]
     Active Substance: INSULIN LISPRO
     Dosage: UNK

REACTIONS (10)
  - Blindness [Not Recovered/Not Resolved]
  - Road traffic accident [Unknown]
  - Post procedural complication [Not Recovered/Not Resolved]
  - Gait disturbance [Unknown]
  - Vision blurred [Unknown]
  - Limb injury [Unknown]
  - Pain in extremity [Unknown]
  - Ankle fracture [Unknown]
  - Fall [Unknown]
  - Inappropriate schedule of product administration [Unknown]

NARRATIVE: CASE EVENT DATE: 20120129
